FAERS Safety Report 18771902 (Version 1)
Quarter: 2021Q1

REPORT INFORMATION
  Report Type: Spontaneous
  Country: US (occurrence: US)
  Receive Date: 20210121
  Receipt Date: 20210121
  Transmission Date: 20210419
  Serious: No
  Sender: FDA-Public Use
  Company Number: US-PERRIGO-20US012361

PATIENT

DRUGS (2)
  1. NICOTINE POLACRILEX [Suspect]
     Active Substance: NICOTINE
     Indication: INFLAMMATORY BOWEL DISEASE
     Dosage: UNKNOWN, UNKNOWN
     Route: 002
     Dates: start: 2018
  2. NICOTINE POLACRILEX [Suspect]
     Active Substance: NICOTINE
     Indication: COLITIS ULCERATIVE

REACTIONS (1)
  - Drug effective for unapproved indication [Unknown]

NARRATIVE: CASE EVENT DATE: 2018
